FAERS Safety Report 8925862 (Version 3)
Quarter: 2013Q1

REPORT INFORMATION
  Report Type: Report from Study
  Country: US (occurrence: US)
  Receive Date: 20121126
  Receipt Date: 20130213
  Transmission Date: 20140127
  Serious: Yes (Hospitalization, Other)
  Sender: FDA-Public Use
  Company Number: US-ROCHE-1148345

PATIENT
  Age: 75 Year
  Sex: Male
  Weight: 92 kg

DRUGS (17)
  1. RITUXIMAB [Suspect]
     Indication: CHRONIC LYMPHOCYTIC LEUKAEMIA
     Route: 042
     Dates: start: 20111108, end: 20120501
  2. RITUXIMAB [Suspect]
     Route: 042
     Dates: start: 20120126
  3. RITUXIMAB [Suspect]
     Route: 042
     Dates: start: 20120301
  4. RITUXIMAB [Suspect]
     Route: 042
     Dates: start: 20120501, end: 20120501
  5. BENADRYL [Concomitant]
     Indication: PREMEDICATION
     Route: 048
  6. TYLENOL [Concomitant]
     Indication: PREMEDICATION
     Route: 048
     Dates: start: 20111108
  7. LISINOPRIL [Concomitant]
     Indication: HYPERTENSION
     Route: 048
     Dates: start: 20051215
  8. HYDROCORTISONE [Concomitant]
     Indication: RASH
     Route: 061
     Dates: start: 20110602
  9. HYDROCORTISONE [Concomitant]
     Route: 042
     Dates: start: 20111108
  10. SILDENAFIL CITRATE [Concomitant]
     Route: 048
     Dates: start: 20120316
  11. ACETAMINOPHEN [Concomitant]
     Indication: BACK PAIN
     Route: 048
     Dates: start: 20080519
  12. SIMVASTATIN [Concomitant]
     Indication: HYPERLIPIDAEMIA
     Route: 048
     Dates: start: 20040310
  13. ALLOPURINOL [Concomitant]
     Indication: GOUT
     Route: 048
     Dates: start: 20100716
  14. GABAPENTIN [Concomitant]
     Indication: NEUROPATHY PERIPHERAL
     Route: 048
  15. ASA EC [Concomitant]
     Indication: CARDIOVASCULAR EVENT PROPHYLAXIS
     Route: 048
  16. CHOLECALCIFEROL [Concomitant]
     Indication: VITAMIN D DEFICIENCY
     Dosage: 400 UNITS
     Route: 048
  17. FLUDARABINE [Concomitant]

REACTIONS (8)
  - Abdominal pain upper [Recovered/Resolved]
  - Splenic infarction [Recovering/Resolving]
  - Lymphadenopathy [Unknown]
  - Fatigue [Unknown]
  - Pyrexia [Unknown]
  - Chills [Unknown]
  - Dyspnoea [Unknown]
  - Cough [Unknown]
